FAERS Safety Report 7879086-8 (Version None)
Quarter: 2011Q4

REPORT INFORMATION
  Report Type: 
  Country: None (occurrence: None)
  Receive Date: 20111101
  Receipt Date: 20111028
  Transmission Date: 20120403
  Serious: Yes (Life-Threatening)
  Sender: FDA-Public Use
  Company Number: PHHY2011BR95835

PATIENT
  Age: 65 Year
  Sex: Male

DRUGS (3)
  1. CATAFLAM [Suspect]
     Indication: INTERVERTEBRAL DISC PROTRUSION
     Dosage: 1 DF, QD
     Route: 054
  2. MASSAGEOL [Concomitant]
     Dosage: UNK
  3. TORSILAX [Concomitant]
     Dosage: UNK

REACTIONS (5)
  - PAIN [None]
  - PAIN IN EXTREMITY [None]
  - GAIT DISTURBANCE [None]
  - CONDITION AGGRAVATED [None]
  - ARTHRALGIA [None]
